FAERS Safety Report 7573600-8 (Version None)
Quarter: 2011Q2

REPORT INFORMATION
  Report Type: 
  Country: None (occurrence: None)
  Receive Date: 20110627
  Receipt Date: 20110621
  Transmission Date: 20111010
  Serious: Yes (Other)
  Sender: FDA-Public Use
  Company Number: US-ELI_LILLY_AND_COMPANY-US201106006104

PATIENT

DRUGS (4)
  1. GEMCITABINE HYDROCHLORIDE [Suspect]
     Dosage: 500 MG, OTHER
     Route: 042
  2. GEMCITABINE HYDROCHLORIDE [Suspect]
     Dosage: 400 MG/M2, OTHER
  3. OTHER PHARMA COMPANY INV DRUG [Suspect]
     Indication: PANCREATIC CARCINOMA
  4. GEMCITABINE HYDROCHLORIDE [Suspect]
     Indication: PANCREATIC CARCINOMA
     Dosage: 1000 MG/M2, OTHER
     Route: 042

REACTIONS (1)
  - ASCITES [None]
